FAERS Safety Report 20951033 (Version 1)
Quarter: 2022Q2

REPORT INFORMATION
  Report Type: Spontaneous
  Country: US (occurrence: None)
  Receive Date: 20220613
  Receipt Date: 20220613
  Transmission Date: 20220720
  Serious: No
  Sender: FDA-Public Use
  Company Number: None

PATIENT
  Age: 77 Year
  Sex: Female
  Weight: 74.89 kg

DRUGS (14)
  1. IBRANCE [Suspect]
     Active Substance: PALBOCICLIB
     Indication: Breast cancer
     Dosage: OTHER FREQUENCY : 21DON7OFF;?
     Route: 048
  2. AMLODIPINE [Concomitant]
  3. AMOXICILLIN [Concomitant]
     Active Substance: AMOXICILLIN
  4. ASPIR-LOW [Concomitant]
  5. ATORVASTATIN [Concomitant]
  6. CARVEDILOL [Concomitant]
     Active Substance: CARVEDILOL
  7. LANSOPRAZOLE [Concomitant]
  8. ISOSORBIDE [Concomitant]
  9. CALCIUM 600+D [Concomitant]
  10. ONDANSETRON [Concomitant]
  11. PAROXETINE [Concomitant]
  12. PROCHLORPERAZINE [Concomitant]
  13. TYLENOL [Concomitant]
  14. XARELTO [Concomitant]

REACTIONS (2)
  - Full blood count decreased [None]
  - Therapy interrupted [None]
